FAERS Safety Report 24174765 (Version 1)
Quarter: 2024Q3

REPORT INFORMATION
  Report Type: Report from Study
  Country: US (occurrence: None)
  Receive Date: 20240805
  Receipt Date: 20240805
  Transmission Date: 20241016
  Serious: Yes (Life-Threatening, Other)
  Sender: ASTRAZENECA
  Company Number: 2024A174379

PATIENT
  Sex: Female

DRUGS (1)
  1. FASENRA [Suspect]
     Active Substance: BENRALIZUMAB
     Indication: Asthma
     Route: 058

REACTIONS (6)
  - Near death experience [Unknown]
  - Cataract [Unknown]
  - Macular degeneration [Unknown]
  - Hepatitis B [Unknown]
  - Liver disorder [Unknown]
  - Hepatitis C RNA increased [Unknown]
